FAERS Safety Report 6554954-8 (Version None)
Quarter: 2010Q1

REPORT INFORMATION
  Report Type: 
  Country: None (occurrence: None)
  Receive Date: 20100126
  Receipt Date: 20100126
  Transmission Date: 20100710
  Serious: Yes (Life-Threatening, Hospitalization)
  Sender: FDA-Public Use
  Company Number: None

PATIENT
  Age: 35 Year
  Sex: Male
  Weight: 95.2554 kg

DRUGS (1)
  1. CIPROFLAXACIN [Suspect]
     Indication: GASTROENTERITIS VIRAL
     Dosage: 500MG TWICE A DAY PO
     Route: 048
     Dates: start: 20080628, end: 20080705

REACTIONS (5)
  - APPARENT DEATH [None]
  - CARDIAC DISORDER [None]
  - PALPITATIONS [None]
  - ROTATOR CUFF SYNDROME [None]
  - VISION BLURRED [None]
